FAERS Safety Report 10214559 (Version 1)
Quarter: 2014Q2

REPORT INFORMATION
  Report Type: Spontaneous
  Country: FR (occurrence: FR)
  Receive Date: 20140603
  Receipt Date: 20140603
  Transmission Date: 20141212
  Serious: Yes (Other)
  Sender: FDA-Public Use
  Company Number: FR-JNJFOC-20140515811

PATIENT
  Age: 60 Year
  Sex: Male

DRUGS (1)
  1. XEPLION [Suspect]
     Indication: PRODUCT USED FOR UNKNOWN INDICATION
     Route: 030

REACTIONS (5)
  - Infection [Unknown]
  - Extrapyramidal disorder [Unknown]
  - Cogwheel rigidity [Unknown]
  - Neuroleptic malignant syndrome [Unknown]
  - Diarrhoea [Unknown]
